FAERS Safety Report 14120472 (Version 1)
Quarter: 2017Q4

REPORT INFORMATION
  Report Type: Spontaneous
  Country: IN (occurrence: IN)
  Receive Date: 20171024
  Receipt Date: 20171024
  Transmission Date: 20180321
  Serious: Yes (Hospitalization, Other)
  Sender: FDA-Public Use
  Company Number: IN-MYLANLABS-2017M1065710

PATIENT
  Age: 3 Decade
  Sex: Male

DRUGS (5)
  1. RIFAMPICIN [Suspect]
     Active Substance: RIFAMPIN
     Indication: TYPE 2 LEPRA REACTION
     Route: 065
  2. DAPSONE. [Suspect]
     Active Substance: DAPSONE
     Indication: TYPE 2 LEPRA REACTION
     Route: 065
  3. THALIDOMIDE [Suspect]
     Active Substance: THALIDOMIDE
     Indication: TYPE 2 LEPRA REACTION
     Route: 065
  4. PREDNISOLONE. [Suspect]
     Active Substance: PREDNISOLONE
     Indication: TYPE 2 LEPRA REACTION
     Route: 065
  5. CLOFAZIMINE [Suspect]
     Active Substance: CLOFAZIMINE
     Indication: TYPE 2 LEPRA REACTION
     Route: 065

REACTIONS (4)
  - Vomiting [Unknown]
  - Depressed level of consciousness [Recovering/Resolving]
  - Respiratory distress [Recovered/Resolved]
  - Hyponatraemia [Recovered/Resolved]
